FAERS Safety Report 7606035-X (Version None)
Quarter: 2011Q3

REPORT INFORMATION
  Report Type: 
  Country: None (occurrence: None)
  Receive Date: 20110713
  Receipt Date: 20110704
  Transmission Date: 20111222
  Serious: Yes (Hospitalization, Other)
  Sender: FDA-Public Use
  Company Number: PHHY2011BR60469

PATIENT
  Sex: Male

DRUGS (2)
  1. GALVUS [Suspect]
     Indication: DIABETES MELLITUS
     Dosage: 1 DF, 50 MG
     Route: 048
  2. DIOVAN [Suspect]
     Indication: HYPERTENSION
     Dosage: 1 DF, 320 MG

REACTIONS (1)
  - MYOCARDIAL INFARCTION [None]
